FAERS Safety Report 9475119 (Version 1)
Quarter: 2013Q3

REPORT INFORMATION
  Report Type: Report from Study
  Country: US (occurrence: US)
  Receive Date: 20130824
  Receipt Date: 20130824
  Transmission Date: 20140515
  Serious: Yes (Other)
  Sender: FDA-Public Use
  Company Number: US-ROCHE-1265051

PATIENT
  Sex: Female

DRUGS (19)
  1. XOLAIR [Suspect]
     Indication: PRODUCT USED FOR UNKNOWN INDICATION
     Route: 058
  2. AZITHROMYCIN [Concomitant]
     Dosage: TAKE 1 TABLET DAILY AS DIRECTED
     Route: 048
  3. BENZONATATE [Concomitant]
     Dosage: EVERY 6 HOURS AS NEEDED
     Route: 048
  4. CARISOPRODOL [Concomitant]
     Dosage: TAKE 1 TABLET PRN
     Route: 065
  5. CLONAZEPAM [Concomitant]
     Dosage: AT BEDTIME
     Route: 048
  6. CYCLOSPORINE [Concomitant]
     Dosage: TAKE 1 CAPSULE TWICE DAILY.
     Route: 048
  7. EST ESTROGEN-METHYLTEST HS [Concomitant]
     Dosage: TAKE 1 TABLET DAILY AS DIRECTED.
     Route: 048
  8. ESTRADIOL [Concomitant]
     Dosage: TAKE 1 TABLET DAILY AS DIRECTED.
     Route: 048
  9. FLUOCINOLONE ACETONIDE 0.01% [Concomitant]
     Dosage: APPLY TWICE A DAY AS DIRECTED.
     Route: 065
  10. MONTELUKAST [Concomitant]
     Dosage: TAKE 1 TABLET DAILY.
     Route: 048
  11. NASONEX [Concomitant]
     Dosage: USE 1 SPRAY IN EACH NOSTRIL ONCE DAILY.
     Route: 065
  12. OMEPRAZOLE [Concomitant]
     Dosage: TAKE 1 CAPSULE DAILY.
     Route: 065
  13. PREDNISONE [Concomitant]
     Dosage: TAKE 2 TABLETS DAILY.
     Route: 048
  14. PREDNISONE [Concomitant]
     Dosage: TAKE 1 TABLET AS DIRECTED.
     Route: 048
  15. PROZAC [Concomitant]
     Dosage: TAKE 1 CAPSULE DAILY.
     Route: 048
  16. SYMBICORT [Concomitant]
     Dosage: INHALE 2 PUFFS TWICE A DAY, RINSE AFTER USE.
     Route: 065
  17. ZYRTEC [Concomitant]
     Route: 065
  18. LIDEX [Concomitant]
     Route: 061
  19. CEFUROXIME AXETIL [Concomitant]
     Dosage: TAKE 1 TABLET EVERY 12 HOURS DAILY.
     Route: 048

REACTIONS (19)
  - Bone pain [Unknown]
  - Anxiety [Unknown]
  - Depression [Unknown]
  - Gastrooesophageal reflux disease [Unknown]
  - Glucose tolerance impaired [Unknown]
  - Helicobacter infection [Unknown]
  - Irritable bowel syndrome [Unknown]
  - Myopia [Unknown]
  - Narcolepsy [Unknown]
  - Pertussis [Unknown]
  - Rash [Unknown]
  - Blood pressure systolic increased [Unknown]
  - Tooth disorder [Unknown]
  - Bronchitis [Unknown]
  - Vitamin D deficiency [Unknown]
  - Hypogammaglobulinaemia [Unknown]
  - Cataplexy [Unknown]
  - Palpitations [Unknown]
  - Nausea [Unknown]
